FAERS Safety Report 19196900 (Version 2)
Quarter: 2021Q2

REPORT INFORMATION
  Report Type: Spontaneous
  Country: US (occurrence: US)
  Receive Date: 20210429
  Receipt Date: 20210601
  Transmission Date: 20210717
  Serious: No
  Sender: FDA-Public Use
  Company Number: US-ALKERMES INC.-ALK-2021-002031

PATIENT
  Age: 64 Year
  Sex: Male
  Weight: 117.91 kg

DRUGS (2)
  1. VIVITROL [Suspect]
     Active Substance: NALTREXONE
     Dosage: 380 MILLIGRAM, QMO
     Route: 030
     Dates: start: 20210418, end: 20210418
  2. VIVITROL [Suspect]
     Active Substance: NALTREXONE
     Indication: WEIGHT CONTROL
     Dosage: 380 MILLIGRAM, QMO
     Route: 030
     Dates: start: 20210518

REACTIONS (2)
  - Off label use [Not Recovered/Not Resolved]
  - Weight increased [Not Recovered/Not Resolved]

NARRATIVE: CASE EVENT DATE: 2021
